FAERS Safety Report 6148749-7 (Version None)
Quarter: 2009Q2

REPORT INFORMATION
  Report Type: 
  Country: None (occurrence: None)
  Receive Date: 20090408
  Receipt Date: 20090402
  Transmission Date: 20091009
  Serious: Yes (Other)
  Sender: FDA-Public Use
  Company Number: US-ELI_LILLY_AND_COMPANY-US200903001731

PATIENT
  Sex: Female
  Weight: 100.68 kg

DRUGS (6)
  1. GEMZAR [Suspect]
     Indication: PANCREATIC CARCINOMA
     Dosage: 2000 MG, Q WEEK FOR 3 OUT OF 4 WEEKS
     Route: 042
     Dates: start: 20081120
  2. TARCEVA [Concomitant]
     Indication: PANCREATIC CARCINOMA METASTATIC
     Dosage: 100 MG, DAILY (1/D)
  3. ANZEMET [Concomitant]
     Dosage: 100 MG, EVERY WEEK FOR 3 OUT OF 4 WEEKS
     Route: 042
  4. DECADRAN /00016002/ [Concomitant]
     Dosage: 10 MG, EVERY WEEK FOR 3 OUT OF 4 WEEKS
  5. CIPROFLOXACIN HCL [Concomitant]
     Dates: start: 20090319
  6. SODIUM CHLORIDE [Concomitant]
     Dosage: 500 ML, UNK

REACTIONS (4)
  - ANAEMIA [None]
  - DYSPNOEA [None]
  - NEUTROPENIA [None]
  - POOR VENOUS ACCESS [None]
